FAERS Safety Report 24737254 (Version 1)
Quarter: 2024Q4

REPORT INFORMATION
  Report Type: Spontaneous
  Country: US (occurrence: US)
  Receive Date: 20241216
  Receipt Date: 20241216
  Transmission Date: 20250114
  Serious: Yes (Hospitalization)
  Sender: ALVOGEN
  Company Number: US-ALVOGEN-2024095163

PATIENT

DRUGS (2)
  1. FENTANYL [Suspect]
     Active Substance: FENTANYL
     Indication: Pain
     Dosage: FOR 5 YEARS
     Route: 062
     Dates: start: 2019
  2. FENTANYL [Suspect]
     Active Substance: FENTANYL
     Indication: Pain
     Dosage: 45 CNT / 9 BOXES ?EXPIRY DATE: MAY-2027
     Route: 062

REACTIONS (4)
  - Withdrawal syndrome [Unknown]
  - Product use issue [Unknown]
  - Product packaging difficult to open [Unknown]
  - Product availability issue [Unknown]

NARRATIVE: CASE EVENT DATE: 20240101
